FAERS Safety Report 9795651 (Version 1)
Quarter: 2014Q1

REPORT INFORMATION
  Report Type: Spontaneous
  Country: US (occurrence: US)
  Receive Date: 20140103
  Receipt Date: 20140103
  Transmission Date: 20141002
  Serious: No
  Sender: FDA-Public Use
  Company Number: US-PFIZER INC-2014000105

PATIENT
  Sex: Female

DRUGS (4)
  1. LYRICA [Suspect]
     Indication: FIBROMYALGIA
     Dosage: 225 MG (BY TAKING 150MG CAPSULE AND 75MG CAPSULE TOGETHER), 2X/DAY
     Route: 048
  2. LYRICA [Suspect]
     Dosage: 150 MG, 2X/DAY
     Route: 048
  3. LYRICA [Suspect]
     Dosage: 225MG IN MORNING(CONTENT OF ONE 150MG INTO HALF AND TAKING IT WITH ANOTHER 150MG) AND 150MG AT NIGHT
     Route: 048
  4. LYRICA [Suspect]
     Dosage: TWO 150MG TOGETHER IN THE MORNING AND 150MG AT NIGHT
     Route: 048

REACTIONS (5)
  - Somnolence [Unknown]
  - Drug ineffective [Unknown]
  - Pain [Unknown]
  - Intentional drug misuse [Unknown]
  - Incorrect dose administered [Unknown]
